FAERS Safety Report 9114031 (Version 1)
Quarter: 2013Q1

REPORT INFORMATION
  Report Type: Spontaneous
  Country: US (occurrence: None)
  Receive Date: 20130220
  Receipt Date: 20130220
  Transmission Date: 20140127
  Serious: Yes (Hospitalization)
  Sender: FDA-Public Use
  Company Number: None

PATIENT
  Sex: Male

DRUGS (3)
  1. 5-FLUOROURACIL [Suspect]
  2. LEUCOVORIN CALCIUM [Suspect]
  3. OXALIPLATIN [Suspect]

REACTIONS (4)
  - Blood pressure increased [None]
  - Heart rate increased [None]
  - Culture urine positive [None]
  - Escherichia test positive [None]
